FAERS Safety Report 21906879 (Version 1)
Quarter: 2023Q1

REPORT INFORMATION
  Report Type: Other
  Country: JP (occurrence: JP)
  Receive Date: 20230125
  Receipt Date: 20230125
  Transmission Date: 20230418
  Serious: Yes (Other)
  Sender: FDA-Public Use
  Company Number: JP-CHUGAI-2022041198AA

PATIENT
  Age: 22 Year
  Sex: Male
  Weight: 53 kg

DRUGS (3)
  1. TOCILIZUMAB [Suspect]
     Active Substance: TOCILIZUMAB
     Indication: Cytokine release syndrome
     Dosage: UNK
     Route: 065
  2. KYMRIAH [Suspect]
     Active Substance: TISAGENLECLEUCEL
     Indication: Acute lymphocytic leukaemia recurrent
     Dosage: TOTAL NUMBER OF LYMPHOCYTES:2.5 X10^8 (WHOLE DOSE)
     Route: 041
     Dates: start: 20220225, end: 20220225
  3. FLUDARABINE PHOSPHATE [Concomitant]
     Active Substance: FLUDARABINE PHOSPHATE
     Dosage: UNK
     Route: 065
     Dates: start: 20220220

REACTIONS (5)
  - Platelet count decreased [Unknown]
  - Candida infection [Unknown]
  - Candida pneumonia [Unknown]
  - Candida endophthalmitis [Unknown]
  - Hypogammaglobulinaemia [Recovered/Resolved]

NARRATIVE: CASE EVENT DATE: 20220314
